FAERS Safety Report 19135289 (Version 2)
Quarter: 2021Q2

REPORT INFORMATION
  Report Type: Report from Study
  Country: US (occurrence: US)
  Receive Date: 20210414
  Receipt Date: 20210420
  Transmission Date: 20210717
  Serious: Yes (Hospitalization, Other)
  Sender: FDA-Public Use
  Company Number: US-JNJFOC-20210403976

PATIENT
  Age: 71 Year
  Sex: Male
  Weight: 104.5 kg

DRUGS (4)
  1. EPOPROSTENOL SODIUM. [Suspect]
     Active Substance: EPOPROSTENOL SODIUM
     Route: 042
  2. EPOPROSTENOL SODIUM. [Suspect]
     Active Substance: EPOPROSTENOL SODIUM
     Indication: PULMONARY ARTERIAL HYPERTENSION
     Route: 042
  3. SILDENAFIL CITRATE. [Concomitant]
     Active Substance: SILDENAFIL CITRATE
  4. OXYGEN. [Concomitant]
     Active Substance: OXYGEN

REACTIONS (8)
  - Respiratory distress [Unknown]
  - Syncope [Unknown]
  - Headache [Unknown]
  - Fluid overload [Unknown]
  - Oxygen consumption increased [Unknown]
  - Atrial fibrillation [Unknown]
  - Back pain [Unknown]
  - Arthritis [Unknown]

NARRATIVE: CASE EVENT DATE: 20210404
